FAERS Safety Report 15636922 (Version 5)
Quarter: 2019Q2

REPORT INFORMATION
  Report Type: Spontaneous
  Country: US (occurrence: US)
  Receive Date: 20181120
  Receipt Date: 20190501
  Transmission Date: 20190711
  Serious: Yes (Other)
  Sender: FDA-Public Use
  Company Number: US-SA-2018SA317400

PATIENT
  Age: 37 Year
  Sex: Female

DRUGS (6)
  1. DUPIXENT [Suspect]
     Active Substance: DUPILUMAB
     Indication: DERMATITIS ATOPIC
     Dosage: 300 MG, QOW
     Route: 058
     Dates: start: 20181115
  2. ABILIFY MAINTENA [Concomitant]
     Active Substance: ARIPIPRAZOLE
     Dosage: 400 MG
     Route: 030
     Dates: start: 20181025
  3. CHLORPROMAZINE. [Concomitant]
     Active Substance: CHLORPROMAZINE
     Dosage: 50 MG, PRN (TID)
     Route: 048
     Dates: start: 20190102
  4. KLONOPIN [Concomitant]
     Active Substance: CLONAZEPAM
     Dosage: 1 MG, PRN (BID)
     Route: 048
  5. BELSOMRA [Concomitant]
     Active Substance: SUVOREXANT
     Dosage: 15 MG, PRN (HS)
     Route: 048
     Dates: start: 20190130
  6. FLUVOXAMINE [Concomitant]
     Active Substance: FLUVOXAMINE
     Dosage: 150 MG, QD
     Route: 048
     Dates: start: 20190102

REACTIONS (8)
  - Injection site rash [Unknown]
  - Upper limb fracture [Unknown]
  - Injection site pruritus [Unknown]
  - Thrombosis [Unknown]
  - Fall [Unknown]
  - Injection site erythema [Unknown]
  - Injection site induration [Unknown]
  - Ligament sprain [Unknown]

NARRATIVE: CASE EVENT DATE: 201901
